FAERS Safety Report 8518746-2 (Version None)
Quarter: 2012Q3

REPORT INFORMATION
  Report Type: 
  Country: None (occurrence: None)
  Receive Date: 20120718
  Receipt Date: 20120710
  Transmission Date: 20120928
  Serious: Yes (Hospitalization)
  Sender: FDA-Public Use
  Company Number: PHHY2012AR059750

PATIENT
  Sex: Female

DRUGS (1)
  1. DIOVAN [Suspect]
     Indication: HYPERTENSION
     Dosage: 0.5 DF, DAILY

REACTIONS (4)
  - MUSCULOSKELETAL DISCOMFORT [None]
  - GAIT DISTURBANCE [None]
  - DRUG INEFFECTIVE [None]
  - ABASIA [None]
